FAERS Safety Report 5165794-9 (Version None)
Quarter: 2006Q4

REPORT INFORMATION
  Report Type: 
  Country: None (occurrence: None)
  Receive Date: 20061128
  Receipt Date: 20061117
  Transmission Date: 20070319
  Serious: Yes (Hospitalization)
  Sender: FDA-Public Use
  Company Number: 229653

PATIENT
  Sex: Male

DRUGS (1)
  1. MABTHERA(RITUXIMAB) CONC FOR SOLUTION FOR INFUSION [Suspect]
     Indication: NON-HODGKIN'S LYMPHOMA
     Dosage: 375 MG/M2
     Dates: start: 20050506, end: 20060209

REACTIONS (3)
  - INFUSION RELATED REACTION [None]
  - NONSPECIFIC REACTION [None]
  - PULMONARY FIBROSIS [None]
